FAERS Safety Report 25305368 (Version 7)
Quarter: 2025Q3

REPORT INFORMATION
  Report Type: Spontaneous
  Country: GB (occurrence: GB)
  Receive Date: 20250513
  Receipt Date: 20250805
  Transmission Date: 20251020
  Serious: Yes (Other)
  Sender: MYLAN
  Company Number: EU-EMA-2025417-AUTODUP-1744921137469

PATIENT
  Age: 79 Year
  Sex: Male

DRUGS (53)
  1. DEXAMETHASONE [Suspect]
     Active Substance: DEXAMETHASONE
     Indication: Plasma cell myeloma
  2. DEXAMETHASONE [Suspect]
     Active Substance: DEXAMETHASONE
  3. DEXAMETHASONE [Suspect]
     Active Substance: DEXAMETHASONE
  4. DEXAMETHASONE [Suspect]
     Active Substance: DEXAMETHASONE
  5. POMALIDOMIDE [Suspect]
     Active Substance: POMALIDOMIDE
     Indication: Plasma cell myeloma
  6. LENALIDOMIDE [Suspect]
     Active Substance: LENALIDOMIDE
     Indication: Plasma cell myeloma
     Dates: start: 2015, end: 202012
  7. VELCADE [Suspect]
     Active Substance: BORTEZOMIB
     Indication: Plasma cell myeloma
  8. CYCLOPHOSPHAMIDE [Suspect]
     Active Substance: CYCLOPHOSPHAMIDE
     Indication: Plasma cell myeloma
  9. ISATUXIMAB [Suspect]
     Active Substance: ISATUXIMAB
     Indication: Plasma cell myeloma
  10. TECVAYLI [Suspect]
     Active Substance: TECLISTAMAB-CQYV
     Indication: Plasma cell myeloma
  11. THALIDOMIDE [Suspect]
     Active Substance: THALIDOMIDE
     Indication: Plasma cell myeloma
  12. THALIDOMIDE [Suspect]
     Active Substance: THALIDOMIDE
  13. TECLISTAMAB [Suspect]
     Active Substance: TECLISTAMAB
     Indication: Plasma cell myeloma
  14. TECLISTAMAB [Suspect]
     Active Substance: TECLISTAMAB
  15. TECLISTAMAB [Suspect]
     Active Substance: TECLISTAMAB
  16. EPOETIN BETA [Concomitant]
     Active Substance: ERYTHROPOIETIN
     Indication: Product used for unknown indication
     Dosage: 30000 INTERNATIONAL UNIT, EVERY WEEK
  17. EPOETIN BETA [Concomitant]
     Active Substance: ERYTHROPOIETIN
     Dosage: 3000 INTERNATIONAL UNIT, EVERY WEEK
  18. EPOETIN BETA [Concomitant]
     Active Substance: ERYTHROPOIETIN
     Dosage: 3000 INTERNATIONAL UNIT, EVERY WEEK
  19. EPOETIN BETA [Concomitant]
     Active Substance: ERYTHROPOIETIN
     Dosage: 30,000 UNITS WEEKLY
  20. ACYCLOVIR [Concomitant]
     Active Substance: ACYCLOVIR
     Indication: Product used for unknown indication
     Dosage: 400 MILLIGRAM, ONCE A DAY (0.5 DAY)
  21. ACYCLOVIR [Concomitant]
     Active Substance: ACYCLOVIR
     Dosage: 400 MILLIGRAM, BID (400 MILLIGRAM, BID)
  22. ACYCLOVIR [Concomitant]
     Active Substance: ACYCLOVIR
     Dosage: 800 MILLIGRAM, ONCE A DAY (400 MILLIGRAM, BID)
  23. ACYCLOVIR [Concomitant]
     Active Substance: ACYCLOVIR
     Dosage: 800 MILLIGRAM, ONCE A DAY (400 MILLIGRAM, BID)
  24. ACYCLOVIR [Concomitant]
     Active Substance: ACYCLOVIR
     Dosage: 400 MG, QD
  25. APIXABAN [Concomitant]
     Active Substance: APIXABAN
     Indication: Product used for unknown indication
     Dosage: 5 MILLIGRAM, ONCE A DAY (0.5 DAY)
  26. APIXABAN [Concomitant]
     Active Substance: APIXABAN
     Dosage: 5 MILLIGRAM, BID (5 MG, Q12H)
  27. APIXABAN [Concomitant]
     Active Substance: APIXABAN
     Dosage: 10 MILLIGRAM, ONCE A DAY (5 MG, Q12H)
  28. APIXABAN [Concomitant]
     Active Substance: APIXABAN
     Dosage: 5 MILLIGRAM, QD
  29. APIXABAN [Concomitant]
     Active Substance: APIXABAN
     Dosage: 10 MILLIGRAM, QD
  30. ATOVAQUONE [Concomitant]
     Active Substance: ATOVAQUONE
     Indication: Product used for unknown indication
     Dosage: 750 MILLIGRAM, ONCE A DAY (0.5 DAY)
  31. ATOVAQUONE [Concomitant]
     Active Substance: ATOVAQUONE
     Dosage: 750 MILLIGRAM, BID
  32. ATOVAQUONE [Concomitant]
     Active Substance: ATOVAQUONE
     Dosage: 1500 MILLIGRAM, ONCE A DAY (750 MILLIGRAM, BID)
  33. ATOVAQUONE [Concomitant]
     Active Substance: ATOVAQUONE
     Dosage: 750 MG, QD (0.5 DAY)
  34. ATOVAQUONE [Concomitant]
     Active Substance: ATOVAQUONE
     Dosage: 1500 MG, QD
  35. BISOPROLOL [Concomitant]
     Active Substance: BISOPROLOL
     Indication: Product used for unknown indication
     Dosage: 7.5 MILLIGRAM, ONCE A DAY
  36. BISOPROLOL [Concomitant]
     Active Substance: BISOPROLOL
     Dosage: 7.5 MILLIGRAM, QD
  37. FINASTERIDE [Concomitant]
     Active Substance: FINASTERIDE
     Indication: Product used for unknown indication
     Dosage: 5 MILLIGRAM, ONCE A DAY
  38. FINASTERIDE [Concomitant]
     Active Substance: FINASTERIDE
     Dosage: 5 MILLIGRAM, QD
  39. TAMSULOSIN [Concomitant]
     Active Substance: TAMSULOSIN
     Indication: Product used for unknown indication
  40. TAMSULOSIN [Concomitant]
     Active Substance: TAMSULOSIN
  41. ZOPICLONE [Concomitant]
     Active Substance: ZOPICLONE
     Indication: Product used for unknown indication
     Dosage: 3.75 MILLIGRAM (ZOPLICLONE 3.75 MG NOCTE)
  42. ZOPICLONE [Concomitant]
     Active Substance: ZOPICLONE
  43. ZOPICLONE [Concomitant]
     Active Substance: ZOPICLONE
     Dosage: UNK MILLIGRAM, QD
  44. DOCUSATE [Concomitant]
     Active Substance: DOCUSATE
     Indication: Product used for unknown indication
     Dosage: 200 MILLIGRAM, ONCE A DAY (0.5 DAY)
  45. DOCUSATE [Concomitant]
     Active Substance: DOCUSATE
     Dosage: 400 MILLIGRAM, ONCE A DAY (200 MILLIGRAM, BID)
  46. DOCUSATE [Concomitant]
     Active Substance: DOCUSATE
     Dosage: 200 MG, QD
  47. DOCUSATE [Concomitant]
     Active Substance: DOCUSATE
     Dosage: 400 MG, QD
  48. DOCUSATE [Concomitant]
     Active Substance: DOCUSATE
     Dosage: 200 MILLIGRAM, QD
  49. DOCUSATE [Concomitant]
     Active Substance: DOCUSATE
     Dosage: 400 MILLIGRAM, QD
  50. BISACODYL [Concomitant]
     Active Substance: BISACODYL
     Indication: Product used for unknown indication
     Dosage: 5 MILLIGRAM, ONCE A DAY (5 MILLIGRAM, PM (BISACODYL 5MG AT NIGHT))
  51. BISACODYL [Concomitant]
     Active Substance: BISACODYL
     Dosage: 5 MILLIGRAM, PM (5 MG AT NIGHT)
  52. BISACODYL [Concomitant]
     Active Substance: BISACODYL
     Dosage: 5 MILLIGRAM, PM (5 MG AT NIGHT)
  53. BISACODYL [Concomitant]
     Active Substance: BISACODYL
     Dosage: 5 MILLIGRAM, PM (5 MG NOCTE)

REACTIONS (4)
  - IgA nephropathy [Unknown]
  - IVth nerve paralysis [Unknown]
  - Drug ineffective [Unknown]
  - COVID-19 [Unknown]

NARRATIVE: CASE EVENT DATE: 20201201
